FAERS Safety Report 11181164 (Version 3)
Quarter: 2015Q4

REPORT INFORMATION
  Report Type: Report from Study
  Country: US (occurrence: US)
  Receive Date: 20150611
  Receipt Date: 20151012
  Transmission Date: 20160304
  Serious: Yes (Other)
  Sender: FDA-Public Use
  Company Number: US-UCBSA-2015018069

PATIENT
  Age: 24 Year
  Sex: Female
  Weight: 53 kg

DRUGS (9)
  1. IMURAN [Concomitant]
     Active Substance: AZATHIOPRINE
     Dosage: 75 MG, ONCE DAILY (QD)
     Dates: start: 201205, end: 20120628
  2. CERTOLIZUMAB PEGOL CD [Suspect]
     Active Substance: CERTOLIZUMAB PEGOL
     Indication: CROHN^S DISEASE
     Dosage: 400 MG, EV 4 WEEKS
     Dates: start: 20111030
  3. IMURAN [Concomitant]
     Active Substance: AZATHIOPRINE
     Dosage: 75 MG, ONCE DAILY (QD)
     Dates: start: 201305, end: 201509
  4. PREDNISONE. [Concomitant]
     Active Substance: PREDNISONE
     Indication: CROHN^S DISEASE
     Dosage: UNK
     Dates: start: 2007, end: 2007
  5. IMURAN [Concomitant]
     Active Substance: AZATHIOPRINE
     Dosage: 50 MG, ONCE DAILY (QD)
     Dates: start: 201509
  6. IMURAN [Concomitant]
     Active Substance: AZATHIOPRINE
     Indication: CROHN^S DISEASE
     Dosage: 75 MG, ONCE DAILY (QD)
     Dates: start: 20110920, end: 201201
  7. IMURAN [Concomitant]
     Active Substance: AZATHIOPRINE
     Dosage: 100 MG, ONCE DAILY (QD)
     Dates: start: 201201, end: 201205
  8. IMURAN [Concomitant]
     Active Substance: AZATHIOPRINE
     Dosage: 100 MG, ONCE DAILY (QD)
     Dates: start: 201206, end: 201305
  9. PREDNISONE. [Concomitant]
     Active Substance: PREDNISONE
     Dosage: 20 MG, ONCE DAILY (QD)
     Dates: start: 20150426

REACTIONS (1)
  - Basal cell carcinoma [Recovering/Resolving]

NARRATIVE: CASE EVENT DATE: 20150513
